FAERS Safety Report 14759340 (Version 1)
Quarter: 2018Q2

REPORT INFORMATION
  Report Type: Spontaneous
  Country: GB (occurrence: GB)
  Receive Date: 20180413
  Receipt Date: 20180413
  Transmission Date: 20180711
  Serious: Yes (Disabling)
  Sender: FDA-Public Use
  Company Number: GB-TEVA-2018-GB-881556

PATIENT
  Age: 71 Year
  Sex: Female
  Weight: 70 kg

DRUGS (13)
  1. CHLORDIAZEPOXIDE. [Concomitant]
     Active Substance: CHLORDIAZEPOXIDE
     Dosage: 2 DOSAGE FORMS DAILY; NIGHT
     Dates: start: 20161017
  2. NYSTAN [Concomitant]
     Active Substance: NYSTATIN
     Dosage: 4 ML DAILY;
     Dates: start: 20170919, end: 20170926
  3. LOPERAMIDE [Concomitant]
     Active Substance: LOPERAMIDE
     Dosage: 2 IMMEDIATELY THEN ONE AFTER EACH LOOSE STOOL
     Dates: start: 20170911, end: 20170926
  4. FEXOFENADINE [Suspect]
     Active Substance: FEXOFENADINE\FEXOFENADINE HYDROCHLORIDE
     Dates: start: 20171121
  5. METROSA [Concomitant]
     Dosage: 2 DOSAGE FORMS DAILY;
     Dates: start: 20161017
  6. FUROSEMIDE. [Concomitant]
     Active Substance: FUROSEMIDE
     Dosage: EVERY MORNING
     Dates: start: 20171108
  7. CALCIUM CARBONATE. [Concomitant]
     Active Substance: CALCIUM CARBONATE
     Dosage: 2 DOSAGE FORMS DAILY;
     Dates: start: 20161017
  8. VOLTAROL [Concomitant]
     Active Substance: DICLOFENAC SODIUM
     Dosage: 3 DOSAGE FORMS DAILY;
     Dates: start: 20161017
  9. ATORVASTATIN [Concomitant]
     Active Substance: ATORVASTATIN
     Dosage: 1 DOSAGE FORMS DAILY; NIGHT
     Dates: start: 20161017
  10. CLOBETASONE BUTYRATE [Concomitant]
     Active Substance: CLOBETASONE BUTYRATE
     Dosage: 2 DOSAGE FORMS DAILY;
     Dates: start: 20171018, end: 20171115
  11. AMITRIPTYLINE HYDROCHLORIDE. [Concomitant]
     Active Substance: AMITRIPTYLINE HYDROCHLORIDE
     Dosage: 2 DOSAGE FORMS DAILY; NIGHT
     Dates: start: 20161017
  12. LANSOPRAZOLE. [Concomitant]
     Active Substance: LANSOPRAZOLE
     Dosage: 2 DOSAGE FORMS DAILY;
     Dates: start: 20161017
  13. COCODAMOL [Concomitant]
     Active Substance: ACETAMINOPHEN\CODEINE PHOSPHATE
     Dosage: 1-2 TO BE TAKEN FOUR TIMES DAILY
     Dates: start: 20161017

REACTIONS (1)
  - Hallucination [Recovered/Resolved]

NARRATIVE: CASE EVENT DATE: 20171121
